FAERS Safety Report 6260669-6 (Version None)
Quarter: 2009Q3

REPORT INFORMATION
  Report Type: 
  Country: None (occurrence: None)
  Receive Date: 20090706
  Receipt Date: 20090624
  Transmission Date: 20100115
  Serious: Yes (Hospitalization)
  Sender: FDA-Public Use
  Company Number: GXKR2009TR07299

PATIENT
  Age: 11 Year
  Sex: Male

DRUGS (1)
  1. AMOXICILLIN-CLAVULANIC ACID (NGX) (AMOXICILLIN, CLAVULANATE) UNKNOWN [Suspect]
     Dosage: ORAL
     Route: 048

REACTIONS (5)
  - ACUTE CORONARY SYNDROME [None]
  - CARDIAC ENZYMES INCREASED [None]
  - ELECTROCARDIOGRAM ST SEGMENT ELEVATION [None]
  - HYPERSENSITIVITY [None]
  - PRURITUS [None]
